FAERS Safety Report 9995845 (Version 1)
Quarter: 2014Q1

REPORT INFORMATION
  Report Type: Spontaneous
  Country: US (occurrence: None)
  Receive Date: 20140310
  Receipt Date: 20140310
  Transmission Date: 20141002
  Serious: Yes (Hospitalization)
  Sender: FDA-Public Use
  Company Number: None

PATIENT
  Age: 5 Year
  Sex: Female
  Weight: 18.8 kg

DRUGS (5)
  1. METHOTREXATE 12 MG [Suspect]
     Indication: ACUTE LYMPHOCYTIC LEUKAEMIA
     Dosage: 12 MG EVERY 28 DAYS INTRATHECAL
     Route: 037
     Dates: start: 20140131, end: 20140131
  2. VINCRISTINE [Concomitant]
  3. MERCAPTOPURINE [Concomitant]
  4. ONDANSETRON [Concomitant]
  5. DEXAMETHASONE [Concomitant]

REACTIONS (2)
  - Convulsion [None]
  - Neurotoxicity [None]
